FAERS Safety Report 22816431 (Version 3)
Quarter: 2024Q1

REPORT INFORMATION
  Report Type: Report from Study
  Country: US (occurrence: US)
  Receive Date: 20230811
  Receipt Date: 20240203
  Transmission Date: 20240410
  Serious: No
  Sender: FDA-Public Use
  Company Number: US-002147023-NVSC2023US174868

PATIENT
  Age: 3 Year
  Sex: Male
  Weight: 11.3 kg

DRUGS (3)
  1. ILARIS [Suspect]
     Active Substance: CANAKINUMAB
     Indication: Juvenile idiopathic arthritis
     Dosage: 72 MG, EVERY 3 WEEKS
     Route: 058
     Dates: start: 20230407
  2. ILARIS [Suspect]
     Active Substance: CANAKINUMAB
     Dosage: 72 MG, Q 21 DAYS
     Route: 058
     Dates: start: 20230407
  3. TYLENOL [Suspect]
     Active Substance: ACETAMINOPHEN
     Indication: Product used for unknown indication
     Dosage: UNK
     Route: 065

REACTIONS (8)
  - Illness [Unknown]
  - Pyrexia [Unknown]
  - Cough [Unknown]
  - Rhinorrhoea [Unknown]
  - Vomiting [Unknown]
  - Rhinovirus infection [Unknown]
  - Pain [Unknown]
  - Hypokinesia [Unknown]

NARRATIVE: CASE EVENT DATE: 20240122
